FAERS Safety Report 16113128 (Version 1)
Quarter: 2019Q1

REPORT INFORMATION
  Report Type: Spontaneous
  Country: CA (occurrence: CA)
  Receive Date: 20190325
  Receipt Date: 20190325
  Transmission Date: 20190418
  Serious: Yes (Other)
  Sender: FDA-Public Use
  Company Number: CA-ABBVIE-19K-028-2713524-00

PATIENT
  Age: 66 Year
  Sex: Female

DRUGS (6)
  1. PROLIA [Concomitant]
     Active Substance: DENOSUMAB
     Indication: ARTHRALGIA
  2. VITAMIN B COMPLEX [Concomitant]
     Active Substance: CYANOCOBALAMIN\DEXPANTHENOL\NIACINAMIDE\PYRIDOXINE HYDROCHLORIDE\RIBOFLAVIN 5^-PHOSPHATE SODIUM\THIAMINE HYDROCHLORIDE\VITAMIN B COMPLEX
     Indication: BONE DENSITY ABNORMAL
  3. TIAPROFENIC ACID [Concomitant]
     Active Substance: TIAPROFENIC ACID
     Indication: PAIN
  4. HUMIRA [Suspect]
     Active Substance: ADALIMUMAB
     Indication: RHEUMATOID ARTHRITIS
     Route: 058
  5. PROLIA [Concomitant]
     Active Substance: DENOSUMAB
     Indication: BONE DENSITY ABNORMAL
  6. TRAMADOL. [Suspect]
     Active Substance: TRAMADOL
     Indication: BACK PAIN
     Route: 065

REACTIONS (10)
  - Osteoporosis [Not Recovered/Not Resolved]
  - Arthralgia [Not Recovered/Not Resolved]
  - Back pain [Not Recovered/Not Resolved]
  - Pain in extremity [Not Recovered/Not Resolved]
  - Spinal fracture [Not Recovered/Not Resolved]
  - Decreased appetite [Not Recovered/Not Resolved]
  - Peripheral swelling [Not Recovered/Not Resolved]
  - Sciatica [Not Recovered/Not Resolved]
  - Nausea [Not Recovered/Not Resolved]
  - Drug ineffective [Not Recovered/Not Resolved]
